FAERS Safety Report 14904277 (Version 1)
Quarter: 2018Q2

REPORT INFORMATION
  Report Type: Report from Study
  Country: None (occurrence: CA)
  Receive Date: 20180516
  Receipt Date: 20180516
  Transmission Date: 20180711
  Serious: Yes (Other)
  Sender: FDA-Public Use
  Company Number: CA-ABBVIE-18K-028-2220176-00

PATIENT
  Sex: Female

DRUGS (2)
  1. HUMIRA [Suspect]
     Active Substance: ADALIMUMAB
     Route: 058
  2. HUMIRA [Suspect]
     Active Substance: ADALIMUMAB
     Indication: RHEUMATOID ARTHRITIS
     Dosage: DID NOT INJECT ON 10 MAY 2018
     Route: 058
     Dates: start: 20141113, end: 2018

REACTIONS (2)
  - Ocular neoplasm [Recovered/Resolved]
  - Ocular neoplasm [Unknown]

NARRATIVE: CASE EVENT DATE: 2018
